FAERS Safety Report 8169464-4 (Version None)
Quarter: 2012Q1

REPORT INFORMATION
  Report Type: 
  Country: None (occurrence: None)
  Receive Date: 20120104
  Receipt Date: 20110923
  Transmission Date: 20120608
  Serious: Yes (Other)
  Sender: FDA-Public Use
  Company Number: 2011HGS-002540

PATIENT
  Age: 31 Year
  Sex: Female
  Weight: 72.5755 kg

DRUGS (7)
  1. METHOTREXATE [Concomitant]
  2. TYLENOL (PARACETAMOL) (PARACETAMOL) [Concomitant]
  3. PROPANOLOL (PROPRANOLOL) (PROPRANOLOL) [Concomitant]
  4. METHIMAZOLE (THIAMAZOLE) (THIAMAZOLE) [Concomitant]
  5. PLAQUENIL (HYDROXYCHLOROQUINE SULFATE) (HYDROXYCHLOROQUINE SULFATE) [Concomitant]
  6. BENLYSTA [Suspect]
     Indication: SYSTEMIC LUPUS ERYTHEMATOSUS
     Dosage: 10 MG/KG, 1 IN 2 WK, INTRAVENOUS DRIP
     Route: 041
     Dates: start: 20110908, end: 20110908
  7. PREDNISONE [Concomitant]

REACTIONS (8)
  - BLOOD PRESSURE DECREASED [None]
  - RASH [None]
  - URTICARIA [None]
  - PRURITUS [None]
  - ANAPHYLACTIC REACTION [None]
  - COUGH [None]
  - FLUSHING [None]
  - CHILLS [None]
